FAERS Safety Report 9285952 (Version 1)
Quarter: 2013Q2

REPORT INFORMATION
  Report Type: Spontaneous
  Country: NL (occurrence: NL)
  Receive Date: 20130513
  Receipt Date: 20130513
  Transmission Date: 20140414
  Serious: Yes (Other)
  Sender: FDA-Public Use
  Company Number: NL-TEVA-403248ISR

PATIENT
  Age: 82 Year
  Sex: Female

DRUGS (1)
  1. METOPROLOLSUCCINAAT PCH RETARD TABLET MGA 25MG [Suspect]
     Indication: ARRHYTHMIA
     Dosage: 1 DD
     Route: 048
     Dates: start: 20120820, end: 20120824

REACTIONS (5)
  - Tympanic membrane disorder [Not Recovered/Not Resolved]
  - Tinnitus [Not Recovered/Not Resolved]
  - Hypersensitivity [Not Recovered/Not Resolved]
  - Ageusia [Not Recovered/Not Resolved]
  - Anosmia [Not Recovered/Not Resolved]
